FAERS Safety Report 6733653-3 (Version None)
Quarter: 2010Q2

REPORT INFORMATION
  Report Type: 
  Country: None (occurrence: None)
  Receive Date: 20100518
  Receipt Date: 20100503
  Transmission Date: 20101027
  Serious: Yes (Death, Hospitalization)
  Sender: FDA-Public Use
  Company Number: 2009AC000029

PATIENT
  Age: 49 Year
  Sex: Male

DRUGS (74)
  1. DIGOXIN [Suspect]
     Dosage: 0.125 MG;PO
     Route: 048
     Dates: start: 20060301
  2. DIGOXIN [Suspect]
     Dosage: IV
     Route: 042
     Dates: start: 20070101, end: 20070113
  3. DIGOXIN [Suspect]
     Dosage: .25 MG;QD;PO
     Route: 048
     Dates: start: 20060401
  4. DIGOXIN [Suspect]
     Dosage: .375 MG;QD;PO
     Route: 048
     Dates: start: 20060301
  5. DIGOXIN [Suspect]
     Dosage: 0.25 MG;QD;PO
     Route: 048
     Dates: start: 20060101
  6. DIGOXIN [Suspect]
     Dosage: .25 MG;BID;IV
     Route: 042
     Dates: start: 20060309, end: 20060309
  7. DIGOXIN [Suspect]
     Dosage: .375 MG;QD;PO
     Route: 048
     Dates: start: 20060310, end: 20060409
  8. DIGOXIN [Suspect]
     Dosage: .25 MG;QD;PO
     Route: 048
     Dates: start: 20060410, end: 20070101
  9. LOPRESSOR [Concomitant]
  10. AMIODARONE [Concomitant]
  11. LASIX [Concomitant]
  12. LISINOPRIL [Concomitant]
  13. DIOVAN [Concomitant]
  14. SPIRONOLACTONE [Concomitant]
  15. POTASSIUM [Concomitant]
  16. HYDROCODONE [Concomitant]
  17. COUMADIN [Concomitant]
  18. ADVAIR DISKUS 100/50 [Concomitant]
  19. POTASSIUM CHLORIDE [Concomitant]
  20. FUROSEMIDE [Concomitant]
  21. CYCLOBENZAPRINE [Concomitant]
  22. POTASSIUM [Concomitant]
  23. COREG [Concomitant]
  24. ADIPEX [Concomitant]
  25. PONDIMIN [Concomitant]
  26. FENPHEN [Concomitant]
  27. SELDANE [Concomitant]
  28. PSEUDOEPINEPHRINE [Concomitant]
  29. VANCENASE [Concomitant]
  30. ZESTORETIC [Concomitant]
  31. BRETHAIRE [Concomitant]
  32. SUDAFED 12 HOUR [Concomitant]
  33. ASPIRIN [Concomitant]
  34. IBUPROFEN [Concomitant]
  35. ALBUTEROL [Concomitant]
  36. ORUVAIL [Concomitant]
  37. ALLEGRA [Concomitant]
  38. NASONEX [Concomitant]
  39. METFORMIN HYDROCHLORIDE [Concomitant]
  40. WELLBUTRIN [Concomitant]
  41. ETODOLAC [Concomitant]
  42. CELEBREX [Concomitant]
  43. NEXIUM [Concomitant]
  44. DOPAMINE HCL [Concomitant]
  45. ENOXAPARIN SODIUM [Concomitant]
  46. ATROPINE [Concomitant]
  47. EPINEPHRINE [Concomitant]
  48. NEO-SYNEPHRINOL [Concomitant]
  49. FENTANYL [Concomitant]
  50. VERSED [Concomitant]
  51. GLYBURIDE [Concomitant]
  52. INSULIN [Concomitant]
  53. LORATADINE [Concomitant]
  54. PANTOPRAZOLE [Concomitant]
  55. BUSPIRONE HCL [Concomitant]
  56. NARCAN [Concomitant]
  57. ROMAZION [Concomitant]
  58. HALDOL [Concomitant]
  59. MEDROXYPROGESTERONE [Concomitant]
  60. THEOPHYLLINE [Concomitant]
  61. VANCOMYCIN [Concomitant]
  62. PREDNISONE [Concomitant]
  63. LINEZOLID [Concomitant]
  64. PROPOXYPHENE [Concomitant]
  65. XOPENEX [Concomitant]
  66. SOLU-MEDROL [Concomitant]
  67. KAYEXALATE [Concomitant]
  68. LEVOFLOXACIN [Concomitant]
  69. HEPARIN [Concomitant]
  70. DOBUTAMINE HCL [Concomitant]
  71. TYLENOL [Concomitant]
  72. SODIUM SULFACETAMIDE [Concomitant]
  73. XENADERM [Concomitant]
  74. REGLAN [Concomitant]

REACTIONS (35)
  - ACUTE RESPIRATORY FAILURE [None]
  - ADVERSE DRUG REACTION [None]
  - CARDIO-RESPIRATORY ARREST [None]
  - CARDIOACTIVE DRUG LEVEL INCREASED [None]
  - COMA [None]
  - CONFUSIONAL STATE [None]
  - CYANOSIS [None]
  - DECUBITUS ULCER [None]
  - DEEP VEIN THROMBOSIS [None]
  - DEHYDRATION [None]
  - DISORIENTATION [None]
  - DYSURIA [None]
  - EJECTION FRACTION DECREASED [None]
  - HYPERGLYCAEMIA [None]
  - HYPERKALAEMIA [None]
  - HYPOTENSION [None]
  - INFUSION SITE INFECTION [None]
  - INTERVERTEBRAL DISC PROTRUSION [None]
  - METABOLIC SYNDROME [None]
  - NAUSEA [None]
  - OEDEMA PERIPHERAL [None]
  - PLEURAL EFFUSION [None]
  - POLYNEUROPATHY [None]
  - RADICULOPATHY [None]
  - RASH [None]
  - RENAL FAILURE [None]
  - SOMNOLENCE [None]
  - SPINAL COLUMN STENOSIS [None]
  - THROMBOCYTOPENIA [None]
  - URINARY TRACT INFECTION STAPHYLOCOCCAL [None]
  - VENTRICULAR FIBRILLATION [None]
  - VENTRICULAR TACHYCARDIA [None]
  - VIRAL INFECTION [None]
  - VOMITING [None]
  - WEIGHT INCREASED [None]
